FAERS Safety Report 12771774 (Version 1)
Quarter: 2016Q3

REPORT INFORMATION
  Report Type: Spontaneous
  Country: US (occurrence: US)
  Receive Date: 20160922
  Receipt Date: 20160922
  Transmission Date: 20161109
  Serious: No
  Sender: FDA-Public Use
  Company Number: US-GILEAD-2016-0234102

PATIENT
  Age: 74 Year
  Sex: Male

DRUGS (1)
  1. RANEXA [Suspect]
     Active Substance: RANOLAZINE
     Indication: ANGINA PECTORIS
     Route: 065

REACTIONS (4)
  - Confusional state [Recovering/Resolving]
  - Memory impairment [Recovering/Resolving]
  - Dizziness [Recovering/Resolving]
  - Mental disorder [Recovering/Resolving]
